FAERS Safety Report 8486081-7 (Version None)
Quarter: 2012Q3

REPORT INFORMATION
  Report Type: 
  Country: None (occurrence: None)
  Receive Date: 20120703
  Receipt Date: 20120623
  Transmission Date: 20120928
  Serious: Yes (Other)
  Sender: FDA-Public Use
  Company Number: US-BIOMARINP-002623

PATIENT
  Sex: Female
  Weight: 70.2 kg

DRUGS (1)
  1. KUVAN [Suspect]
     Indication: PHENYLKETONURIA
     Route: 048
     Dates: start: 20101005

REACTIONS (2)
  - MATERNAL EXPOSURE DURING PREGNANCY [None]
  - ABORTION SPONTANEOUS [None]
